FAERS Safety Report 20308016 (Version 1)
Quarter: 2022Q1

REPORT INFORMATION
  Report Type: Spontaneous
  Country: FR (occurrence: FR)
  Receive Date: 20220107
  Receipt Date: 20220107
  Transmission Date: 20220423
  Serious: Yes (Other)
  Sender: FDA-Public Use
  Company Number: FR-BRISTOL-MYERS SQUIBB COMPANY-BMS-2021-144574

PATIENT
  Age: 85 Year
  Sex: Female
  Weight: 58.5 kg

DRUGS (2)
  1. ELIQUIS [Suspect]
     Active Substance: APIXABAN
     Indication: Cerebrovascular accident prophylaxis
     Dosage: UNK, BID
     Route: 065
     Dates: start: 20210911
  2. BISOPROLOL FUMARATE [Concomitant]
     Active Substance: BISOPROLOL FUMARATE
     Indication: Sinus tachycardia
     Dosage: 1.25 (UNITS UNSPECIFIED)
     Route: 065

REACTIONS (5)
  - Cardiac failure [Unknown]
  - Vertigo [Unknown]
  - Fatigue [Unknown]
  - Eye irritation [Unknown]
  - Pain in extremity [Unknown]
